FAERS Safety Report 24576050 (Version 1)
Quarter: 2024Q4

REPORT INFORMATION
  Report Type: Spontaneous
  Country: US (occurrence: None)
  Receive Date: 20241101
  Receipt Date: 20241101
  Transmission Date: 20250115
  Serious: No
  Sender: Public
  Company Number: None

PATIENT
  Age: 92 Year
  Sex: Female

DRUGS (16)
  1. SUCRALFATE [Suspect]
     Active Substance: SUCRALFATE
     Dosage: FREQUENCY : 4 TIMES A DAY;?
     Route: 048
  2. ROSUVASTATIN [Concomitant]
     Active Substance: ROSUVASTATIN
  3. ONDANSETRON [Concomitant]
     Active Substance: ONDANSETRON
  4. STYLEN [Concomitant]
  5. TOBRA/DEXAMOP [Concomitant]
  6. MINOXIDIL [Concomitant]
     Active Substance: MINOXIDIL
  7. GEMTESA [Concomitant]
     Active Substance: VIBEGRON
  8. PRILOSEC [Concomitant]
     Active Substance: OMEPRAZOLE MAGNESIUM
  9. GLUCOSAMINE [Concomitant]
     Active Substance: GLUCOSAMINE
  10. VITAMIN B COMPLEX [Concomitant]
     Active Substance: CYANOCOBALAMIN\DEXPANTHENOL\NIACINAMIDE\PYRIDOXINE HYDROCHLORIDE\RIBOFLAVIN 5^-PHOSPHATE SODIUM\THIA
  11. CALCIUM CITRATE [Concomitant]
     Active Substance: CALCIUM CITRATE
  12. TYLENOL PM [Concomitant]
     Active Substance: ACETAMINOPHEN\DIPHENHYDRAMINE
  13. RELAXIUM SLEEP [Concomitant]
  14. MAGNESIUM [Concomitant]
     Active Substance: MAGNESIUM
  15. OMEGA 3 [Concomitant]
     Active Substance: CAPSAICIN
  16. GRALISE [Concomitant]
     Active Substance: GABAPENTIN

REACTIONS (2)
  - Gastrooesophageal reflux disease [None]
  - Constipation [None]

NARRATIVE: CASE EVENT DATE: 20240815
